FAERS Safety Report 24815829 (Version 2)
Quarter: 2025Q1

REPORT INFORMATION
  Report Type: Spontaneous
  Country: DE (occurrence: DE)
  Receive Date: 20250107
  Receipt Date: 20250131
  Transmission Date: 20250409
  Serious: Yes (Other)
  Sender: BOEHRINGER INGELHEIM
  Company Number: DE-Komodo Health-a23aa0000054hebAAA

PATIENT
  Age: 79 Year
  Sex: Female

DRUGS (1)
  1. PRADAXA [Suspect]
     Active Substance: DABIGATRAN ETEXILATE MESYLATE
     Indication: Atrial fibrillation

REACTIONS (2)
  - Pancreatic neuroendocrine tumour [Recovered/Resolved]
  - Pulpitis dental [Not Recovered/Not Resolved]

NARRATIVE: CASE EVENT DATE: 20130101
